FAERS Safety Report 5841399-9 (Version None)
Quarter: 2008Q3

REPORT INFORMATION
  Report Type: 
  Country: None (occurrence: None)
  Receive Date: 20080731
  Receipt Date: 20080606
  Transmission Date: 20090109
  Serious: No
  Sender: FDA-Public Use
  Company Number: US200805003930

PATIENT
  Age: 47 Year
  Sex: Female
  Weight: 70.3 kg

DRUGS (2)
  1. BYETTA [Suspect]
     Indication: INSULIN RESISTANCE
     Dosage: SUBCUTANEOUS ; 5 UG, DAILY (1/D), SUBCUTANEOUS
     Route: 058
     Dates: start: 20080501
  2. EXENATIDE [Concomitant]

REACTIONS (8)
  - DECREASED APPETITE [None]
  - DYSPEPSIA [None]
  - INCREASED APPETITE [None]
  - MALAISE [None]
  - MUSCLE SPASMS [None]
  - NAUSEA [None]
  - ULCER [None]
  - WEIGHT DECREASED [None]
